FAERS Safety Report 9632320 (Version 1)
Quarter: 2013Q4

REPORT INFORMATION
  Report Type: Spontaneous
  Country: DE (occurrence: DE)
  Receive Date: 20131018
  Receipt Date: 20131018
  Transmission Date: 20140711
  Serious: Yes (Hospitalization, Other)
  Sender: FDA-Public Use
  Company Number: DE-JNJFOC-20131007927

PATIENT
  Age: 39 Year
  Sex: Female

DRUGS (3)
  1. XARELTO [Suspect]
     Indication: ANTICOAGULANT THERAPY
     Route: 048
     Dates: start: 201309
  2. XARELTO [Suspect]
     Indication: ANTICOAGULANT THERAPY
     Route: 048
     Dates: start: 201308, end: 201309
  3. DIANE [Suspect]
     Indication: ACNE
     Route: 048
     Dates: start: 2006, end: 201308

REACTIONS (6)
  - Deep vein thrombosis [Recovering/Resolving]
  - Pulmonary embolism [Recovering/Resolving]
  - Deep vein thrombosis [Recovering/Resolving]
  - Pneumonia [Recovering/Resolving]
  - Menorrhagia [Not Recovered/Not Resolved]
  - Right ventricular failure [Recovering/Resolving]
